FAERS Safety Report 7403124-X (Version None)
Quarter: 2011Q2

REPORT INFORMATION
  Report Type: 
  Country: None (occurrence: None)
  Receive Date: 20110408
  Receipt Date: 20110405
  Transmission Date: 20111010
  Serious: Yes (Hospitalization)
  Sender: FDA-Public Use
  Company Number: DE-PFIZER INC-2010121497

PATIENT
  Age: 80 Year
  Sex: Male

DRUGS (13)
  1. CIPROFLOXACIN HCL [Suspect]
     Indication: URINARY TRACT INFECTION
     Dosage: 250 MG, 2X/DAY
     Route: 048
     Dates: start: 20100701, end: 20100703
  2. SIMVASTATIN [Concomitant]
     Indication: DYSLIPIDAEMIA
     Dosage: 10 MG, 1X/DAY
     Route: 048
  3. DIGITOXIN [Concomitant]
     Indication: ATRIAL FIBRILLATION
     Dosage: 0.07 MG, 1X/DAY
  4. AZOPT [Concomitant]
     Indication: GLAUCOMA
     Dosage: 0.5 MG, 2X/DAY
     Route: 057
  5. PANTOZOL [Suspect]
     Dosage: 40 MG, 1X/DAY
  6. GLIBENCLAMIDE [Concomitant]
     Indication: TYPE 2 DIABETES MELLITUS
     Dosage: 1.75 MG, 1X/DAY
     Route: 048
  7. METFORMIN [Concomitant]
     Indication: TYPE 2 DIABETES MELLITUS
     Dosage: 1000 MG, 1X/DAY
     Route: 048
     Dates: end: 20100703
  8. CO-DIOVAN [Concomitant]
     Indication: HYPERTENSION
     Dosage: 1 DF, 1X/DAY
     Route: 048
  9. TORSEMIDE [Concomitant]
     Indication: HYPERTENSION
     Dosage: 10 MG, 1X/DAY
     Route: 048
  10. XALATAN [Concomitant]
     Indication: GLAUCOMA
     Dosage: 1.5 UG, 1X/DAY
     Route: 057
  11. ACETYLSALICYLIC ACID [Concomitant]
     Indication: ISCHAEMIC HEART DISEASE PROPHYLAXIS
     Dosage: 100 MG, 1X/DAY
     Route: 048
  12. REKAWAN [Concomitant]
     Indication: HYPOKALAEMIA
     Dosage: 600 MG, 3X/DAY
  13. METOPROLOL SUCCINATE [Concomitant]
     Dosage: 47.5 MG, 1X/DAY
     Route: 048

REACTIONS (1)
  - CLOSTRIDIUM DIFFICILE COLITIS [None]
